FAERS Safety Report 5854054-6 (Version None)
Quarter: 2008Q3

REPORT INFORMATION
  Report Type: 
  Country: None (occurrence: None)
  Receive Date: 20080822
  Receipt Date: 20080812
  Transmission Date: 20090109
  Serious: Yes (Death)
  Sender: FDA-Public Use
  Company Number: US-ROCHE-572838

PATIENT
  Sex: Male
  Weight: 74.8 kg

DRUGS (6)
  1. XELODA [Suspect]
     Route: 048
     Dates: start: 20080502
  2. PLAVIX [Concomitant]
     Route: 048
  3. LASIX [Concomitant]
     Dosage: FREQUENCY: PRN
     Route: 048
  4. DARVOCET [Concomitant]
     Dosage: FREQUENCY: PRN
     Route: 048
     Dates: start: 20020815
  5. MEGACE [Concomitant]
     Route: 048
     Dates: start: 20080522
  6. COMPAZINE [Concomitant]
     Dosage: FREQUENCY: EVERY 6 HOURS PRN
     Route: 048
     Dates: start: 20080605

REACTIONS (4)
  - ANOREXIA [None]
  - FATIGUE [None]
  - PAIN IN EXTREMITY [None]
  - RESPIRATORY FAILURE [None]
